FAERS Safety Report 8259863-4 (Version None)
Quarter: 2012Q2

REPORT INFORMATION
  Report Type: 
  Country: None (occurrence: None)
  Receive Date: 20120404
  Receipt Date: 20120328
  Transmission Date: 20120825
  Serious: Yes (Other)
  Sender: FDA-Public Use
  Company Number: BR-VIIV HEALTHCARE LIMITED-A0971177A

PATIENT
  Sex: Male

DRUGS (2)
  1. FOSAMPRENAVIR CALCIUM [Suspect]
     Indication: HIV INFECTION
     Dosage: 1400MGD PER DAY
     Route: 048
     Dates: start: 20120201
  2. LAMIVUDINE + ZIDOVUDINE [Suspect]
     Indication: HIV INFECTION
     Route: 048
     Dates: start: 20120201

REACTIONS (3)
  - HALLUCINATION [None]
  - HOMICIDAL IDEATION [None]
  - SUICIDAL IDEATION [None]
